FAERS Safety Report 13807878 (Version 1)
Quarter: 2017Q3

REPORT INFORMATION
  Report Type: Spontaneous
  Country: US (occurrence: US)
  Receive Date: 20170728
  Receipt Date: 20170728
  Transmission Date: 20171127
  Serious: No
  Sender: FDA-Public Use
  Company Number: US-DEPOMED, INC.-US-2016DEP011905

PATIENT

DRUGS (3)
  1. LAZANDA [Suspect]
     Active Substance: FENTANYL CITRATE
     Indication: LUNG CANCER METASTATIC
     Dosage: 100 ?G, QD
     Route: 045
     Dates: start: 20160723, end: 2016
  2. OXYCODONE [Concomitant]
     Active Substance: OXYCODONE
     Indication: PAIN
     Dosage: 10 MG, EIGHT TIMES PER DAY
     Route: 048
  3. FENTANYL. [Concomitant]
     Active Substance: FENTANYL
     Indication: PAIN
     Dosage: 50 ?G, QD
     Route: 062

REACTIONS (5)
  - Tremor [Recovered/Resolved]
  - Cold sweat [Recovered/Resolved]
  - Personality change [Recovered/Resolved]
  - Discomfort [Recovered/Resolved]
  - Irritability [Recovered/Resolved]

NARRATIVE: CASE EVENT DATE: 201607
